FAERS Safety Report 8622977-0 (Version None)
Quarter: 2012Q3

REPORT INFORMATION
  Report Type: 
  Country: None (occurrence: None)
  Receive Date: 20120827
  Receipt Date: 20120823
  Transmission Date: 20120928
  Serious: Yes (Other)
  Sender: FDA-Public Use
  Company Number: PHHY2012FR073268

PATIENT
  Sex: Female

DRUGS (2)
  1. FEMARA [Suspect]
     Dosage: 2.5 MG, QD
     Route: 048
     Dates: start: 20120507, end: 20120525
  2. AVASTIN [Concomitant]
     Dosage: 21 DAYS IN A MONTH
     Dates: start: 20111101

REACTIONS (2)
  - SENSE OF OPPRESSION [None]
  - DYSPNOEA [None]
